FAERS Safety Report 4537657-0 (Version None)
Quarter: 2004Q4

REPORT INFORMATION
  Report Type: 
  Country: None (occurrence: None)
  Receive Date: 20041221
  Receipt Date: 20040920
  Transmission Date: 20050328
  Serious: Yes (Life-Threatening, Hospitalization)
  Sender: FDA-Public Use
  Company Number: PERC20040048

PATIENT
  Age: 68 Year
  Sex: Female

DRUGS (2)
  1. PERCOCET [Suspect]
     Indication: PAIN
     Dosage: PO
     Route: 048
  2. DURAGESIC [Suspect]
     Dosage: ANSDERMAL
     Route: 062

REACTIONS (3)
  - CONFUSIONAL STATE [None]
  - LOSS OF CONSCIOUSNESS [None]
  - PULSE ABSENT [None]
